FAERS Safety Report 5739050-1 (Version None)
Quarter: 2008Q2

REPORT INFORMATION
  Report Type: 
  Country: None (occurrence: None)
  Receive Date: 20080515
  Receipt Date: 20080515
  Transmission Date: 20081010
  Serious: Yes (Other)
  Sender: FDA-Public Use
  Company Number: A0728032A

PATIENT
  Age: 42 Year
  Sex: Female
  Weight: 93.2 kg

DRUGS (7)
  1. ALLI [Suspect]
     Indication: WEIGHT LOSS DIET
     Route: 048
     Dates: start: 20080401, end: 20080511
  2. MULTI-VITAMIN [Concomitant]
  3. CALCIUM [Concomitant]
  4. OSTEOBIFLEX [Concomitant]
     Dosage: 2CAP SINGLE DOSE
  5. FIBER [Concomitant]
     Dosage: 5CAP TWICE PER DAY
     Route: 048
  6. FISH OIL [Concomitant]
  7. ASPIRIN [Concomitant]

REACTIONS (4)
  - ANAL HAEMORRHAGE [None]
  - CONSTIPATION [None]
  - HAEMATOCHEZIA [None]
  - RECTAL HAEMORRHAGE [None]
